FAERS Safety Report 9461457 (Version 1)
Quarter: 2013Q3

REPORT INFORMATION
  Report Type: Report from Study
  Country: LB (occurrence: LB)
  Receive Date: 20130816
  Receipt Date: 20130816
  Transmission Date: 20140515
  Serious: Yes (Hospitalization)
  Sender: FDA-Public Use
  Company Number: PHHY2012LB074825

PATIENT
  Age: 48 Year
  Sex: Female

DRUGS (7)
  1. ACLASTA [Suspect]
     Indication: OSTEOPOROSIS
     Dosage: 5 MG,
     Route: 042
     Dates: start: 20120804
  2. ACLASTA [Suspect]
     Dosage: 5 MG
     Route: 042
     Dates: start: 20130724
  3. DIOVAN [Concomitant]
     Dosage: 1 DF, QD
     Route: 048
  4. CRESTOR [Concomitant]
  5. EURO-D [Concomitant]
  6. GLUCOPHAGE [Concomitant]
     Dosage: UNK UKN, BID
     Route: 048
  7. ZOCOR [Concomitant]
     Dosage: 1 DF, QD
     Route: 048

REACTIONS (7)
  - Loss of consciousness [Recovered/Resolved]
  - Hypotension [Recovered/Resolved]
  - Myalgia [Recovered/Resolved]
  - Pyrexia [Recovered/Resolved]
  - Vomiting [Recovered/Resolved]
  - Diarrhoea [Recovered/Resolved]
  - Blood corticotrophin abnormal [Recovered/Resolved]
